FAERS Safety Report 10693213 (Version 2)
Quarter: 2015Q1

REPORT INFORMATION
  Report Type: Spontaneous
  Country: US (occurrence: US)
  Receive Date: 20150106
  Receipt Date: 20150210
  Transmission Date: 20150720
  Serious: No
  Sender: FDA-Public Use
  Company Number: US-PFIZER INC-2015002828

PATIENT
  Age: 72 Year
  Sex: Male
  Weight: 70 kg

DRUGS (5)
  1. SYMBICORT [Suspect]
     Active Substance: BUDESONIDE\FORMOTEROL FUMARATE DIHYDRATE
     Indication: SINUSITIS
  2. MULTIVITAMINS [Concomitant]
     Active Substance: VITAMINS
  3. SYMBICORT [Suspect]
     Active Substance: BUDESONIDE\FORMOTEROL FUMARATE DIHYDRATE
     Indication: NASOPHARYNGITIS
     Dosage: 2 PUFFS/MORNING AND 2 PUFFS/NIGHT 100MCG/ 4.5MCG INHALATION AEROSOL
     Dates: start: 20140925, end: 201412
  4. FLONASE [Concomitant]
     Active Substance: FLUTICASONE PROPIONATE
  5. XELJANZ [Suspect]
     Active Substance: TOFACITINIB CITRATE
     Dosage: UNK
     Dates: start: 20131111

REACTIONS (2)
  - Drug ineffective [Unknown]
  - Muscle spasms [Recovered/Resolved]
